FAERS Safety Report 22745714 (Version 2)
Quarter: 2023Q4

REPORT INFORMATION
  Report Type: Spontaneous
  Country: FR (occurrence: FR)
  Receive Date: 20230725
  Receipt Date: 20231003
  Transmission Date: 20240110
  Serious: Yes (Other)
  Sender: FDA-Public Use
  Company Number: FR-ROCHE-3393153

PATIENT
  Age: 53 Year
  Sex: Female
  Weight: 66 kg

DRUGS (3)
  1. AVASTIN [Suspect]
     Active Substance: BEVACIZUMAB
     Indication: Colon cancer
     Dosage: THE FIRST LINE
     Route: 065
     Dates: start: 20221005
  2. AVASTIN [Suspect]
     Active Substance: BEVACIZUMAB
     Route: 065
     Dates: start: 20230428, end: 20230519
  3. XELODA [Suspect]
     Active Substance: CAPECITABINE
     Indication: Colon cancer
     Dosage: MORNING AND EVENING FOR 2 WEEKS, 19/05/2023 C2J1 CAPECITABINE (1650 MG MORNING AND EVENING FOR 2 WEE
     Route: 065
     Dates: start: 20230428, end: 20230605

REACTIONS (2)
  - Metastases to lung [Unknown]
  - Cyanosis [Recovering/Resolving]

NARRATIVE: CASE EVENT DATE: 20230530
